FAERS Safety Report 20690816 (Version 1)
Quarter: 2022Q2

REPORT INFORMATION
  Report Type: Spontaneous
  Country: US (occurrence: US)
  Receive Date: 20220408
  Receipt Date: 20220408
  Transmission Date: 20220720
  Serious: Yes (Other)
  Sender: FDA-Public Use
  Company Number: US-ALLERGAN-2211548US

PATIENT
  Sex: Female

DRUGS (1)
  1. IRON DEXTRAN [Suspect]
     Active Substance: IRON DEXTRAN
     Indication: Iron deficiency
     Dosage: UNK
     Route: 042

REACTIONS (2)
  - Pharyngeal swelling [Recovered/Resolved]
  - Nasal congestion [Recovered/Resolved]
